FAERS Safety Report 21950487 (Version 1)
Quarter: 2023Q1

REPORT INFORMATION
  Report Type: Spontaneous
  Country: US (occurrence: None)
  Receive Date: 20230202
  Receipt Date: 20230202
  Transmission Date: 20230417
  Serious: No
  Sender: FDA-Public Use
  Company Number: None

PATIENT
  Sex: 0

DRUGS (1)
  1. CARBAMIDE PEROXIDE [Suspect]
     Active Substance: CARBAMIDE PEROXIDE
     Indication: Dental cleaning
     Dosage: OTHER STRENGTH : NOT SHOWN ON LABEL;?

REACTIONS (1)
  - Product label issue [None]

NARRATIVE: CASE EVENT DATE: 20230201
